FAERS Safety Report 15813250 (Version 1)
Quarter: 2019Q1

REPORT INFORMATION
  Report Type: Spontaneous
  Country: US (occurrence: US)
  Receive Date: 20190111
  Receipt Date: 20190111
  Transmission Date: 20190417
  Serious: Yes (Hospitalization)
  Sender: FDA-Public Use
  Company Number: None

PATIENT
  Age: 40 Year
  Sex: Female

DRUGS (2)
  1. NONE LISTED [Concomitant]
  2. CAPECITABINE. [Suspect]
     Active Substance: CAPECITABINE
     Indication: PRODUCT USED FOR UNKNOWN INDICATION
     Dosage: ?          OTHER FREQUENCY:BID X 14/ 21 DAYS;?
     Route: 048
     Dates: start: 20170110

REACTIONS (2)
  - Therapy cessation [None]
  - Sinusitis [None]

NARRATIVE: CASE EVENT DATE: 20190109
